FAERS Safety Report 4840806-8 (Version None)
Quarter: 2005Q4

REPORT INFORMATION
  Report Type: 
  Country: None (occurrence: None)
  Receive Date: 20051130
  Receipt Date: 20050126
  Transmission Date: 20060501
  Serious: No
  Sender: FDA-Public Use
  Company Number: US-BRISTOL-MYERS SQUIBB COMPANY-12839189

PATIENT
  Age: 68 Year
  Sex: Female
  Weight: 77 kg

DRUGS (2)
  1. AVALIDE [Suspect]
     Indication: HYPERTENSION
     Dosage: DURATION OF THERAPY:  1 1/2 TO 2 YEARS
     Route: 048
  2. NORVASC [Concomitant]

REACTIONS (2)
  - DIZZINESS [None]
  - DRUG INEFFECTIVE [None]
